FAERS Safety Report 6576372-9 (Version None)
Quarter: 2010Q1

REPORT INFORMATION
  Report Type: 
  Country: None (occurrence: None)
  Receive Date: 20100210
  Receipt Date: 20100202
  Transmission Date: 20100710
  Serious: Yes (Other)
  Sender: FDA-Public Use
  Company Number: US-JNJFOC-20100101566

PATIENT
  Age: 70 Year
  Sex: Female
  Weight: 86.18 kg

DRUGS (4)
  1. TYLENOL (CAPLET) [Suspect]
     Route: 048
  2. TYLENOL (CAPLET) [Suspect]
     Indication: ARTHRITIS
     Route: 048
  3. SYNTHROID [Concomitant]
  4. HYPERTENSION MEDICATION [Concomitant]

REACTIONS (3)
  - CYSTITIS [None]
  - GASTROINTESTINAL INFLAMMATION [None]
  - PRODUCT QUALITY ISSUE [None]
